FAERS Safety Report 5048515-X (Version None)
Quarter: 2006Q3

REPORT INFORMATION
  Report Type: 
  Country: None (occurrence: None)
  Receive Date: 20060712
  Receipt Date: 20060705
  Transmission Date: 20061208
  Serious: Yes (Life-Threatening)
  Sender: FDA-Public Use
  Company Number: 2006AP03107

PATIENT
  Age: 9 Year
  Sex: Male

DRUGS (1)
  1. XYLOCAINE [Suspect]
     Indication: LOCAL ANAESTHESIA
     Route: 051

REACTIONS (5)
  - CARDIAC ARREST [None]
  - CEREBRAL INFARCTION [None]
  - CONVULSION [None]
  - MEMORY IMPAIRMENT [None]
  - OVERDOSE [None]
